FAERS Safety Report 5298272-7 (Version None)
Quarter: 2007Q1

REPORT INFORMATION
  Report Type: 
  Country: None (occurrence: None)
  Receive Date: 20070205
  Receipt Date: 20060308
  Transmission Date: 20070707
  Serious: Yes (Hospitalization, Other)
  Sender: FDA-Public Use
  Company Number: US200602004502

PATIENT
  Age: 65 Year
  Sex: Female
  Weight: 85.7 kg

DRUGS (1)
  1. EVISTA [Suspect]

REACTIONS (4)
  - DEEP VEIN THROMBOSIS [None]
  - DIARRHOEA [None]
  - MALAISE [None]
  - PULMONARY EMBOLISM [None]
